FAERS Safety Report 11467799 (Version 1)
Quarter: 2015Q3

REPORT INFORMATION
  Report Type: Spontaneous
  Country: US (occurrence: None)
  Receive Date: 20150904
  Receipt Date: 20150904
  Transmission Date: 20151125
  Serious: Yes (Hospitalization)
  Sender: FDA-Public Use
  Company Number: None

PATIENT
  Age: 51 Year
  Sex: Female

DRUGS (7)
  1. LEVOTHYROXINE. [Concomitant]
     Active Substance: LEVOTHYROXINE
  2. HYDROCHLOROQUINE [Concomitant]
     Active Substance: HYDROXYCHLOROQUINE SULFATE
  3. TOPIRAMATE. [Concomitant]
     Active Substance: TOPIRAMATE
  4. SUMATRIPTAN. [Concomitant]
     Active Substance: SUMATRIPTAN
  5. HCTZ [Concomitant]
     Active Substance: HYDROCHLOROTHIAZIDE
  6. PREGABALIN. [Concomitant]
     Active Substance: PREGABALIN
  7. INFLIXIMAB [Suspect]
     Active Substance: INFLIXIMAB
     Indication: RHEUMATOID ARTHRITIS
     Dates: start: 20140215, end: 20140725

REACTIONS (5)
  - Drug-induced liver injury [None]
  - Fibrosis [None]
  - Cholelithiasis [None]
  - Cholecystitis chronic [None]
  - Autoimmune hepatitis [None]

NARRATIVE: CASE EVENT DATE: 20130804
